FAERS Safety Report 23730846 (Version 1)
Quarter: 2024Q2

REPORT INFORMATION
  Report Type: Spontaneous
  Country: US (occurrence: US)
  Receive Date: 20240411
  Receipt Date: 20240411
  Transmission Date: 20240715
  Serious: No
  Sender: FDA-Public Use
  Company Number: US-JNJFOC-20240388720

PATIENT
  Age: 70 Year
  Sex: Female
  Weight: 46.308 kg

DRUGS (1)
  1. TYLENOL [Suspect]
     Active Substance: ACETAMINOPHEN
     Indication: Pain
     Dosage: 2 TABLETS. TWICE A DAY.
     Route: 065
     Dates: start: 2024

REACTIONS (2)
  - Anal haemorrhage [Not Recovered/Not Resolved]
  - Product administration error [Unknown]

NARRATIVE: CASE EVENT DATE: 20240101
